FAERS Safety Report 20297753 (Version 1)
Quarter: 2022Q1

REPORT INFORMATION
  Report Type: Other
  Country: US (occurrence: None)
  Receive Date: 20220105
  Receipt Date: 20220105
  Transmission Date: 20220423
  Serious: No
  Sender: FDA-Public Use
  Company Number: US-ROCHE-2823239

PATIENT
  Age: 61 Year
  Sex: Female

DRUGS (2)
  1. ALTEPLASE [Suspect]
     Active Substance: ALTEPLASE
     Indication: Infectious pleural effusion
     Dosage: ON DAY 7
     Route: 065
  2. DORNASE ALFA [Suspect]
     Active Substance: DORNASE ALFA
     Indication: Infectious pleural effusion
     Route: 065

REACTIONS (1)
  - Haemoglobin decreased [Unknown]
